FAERS Safety Report 5484481-0 (Version None)
Quarter: 2007Q4

REPORT INFORMATION
  Report Type: 
  Country: None (occurrence: None)
  Receive Date: 20071009
  Receipt Date: 20070926
  Transmission Date: 20080405
  Serious: Yes (Other)
  Sender: FDA-Public Use
  Company Number: 2007332369

PATIENT
  Age: 39 Year
  Sex: Female
  Weight: 57.6068 kg

DRUGS (11)
  1. BENADRYL [Suspect]
     Indication: HYPERSENSITIVITY
     Dosage: ORAL
     Route: 048
  2. METHYLPREDNISOLONE [Suspect]
     Indication: NASAL CONGESTION
  3. CHANTIX [Suspect]
     Indication: SMOKING CESSATION THERAPY
     Dosage: ORAL
     Route: 048
     Dates: start: 20070808, end: 20070812
  4. PROTONIX [Concomitant]
  5. PATANOL [Concomitant]
  6. OXYCODONE HCL [Concomitant]
  7. CYMBALTA [Concomitant]
  8. SYNTHROID [Concomitant]
  9. KLONOPIN [Concomitant]
  10. VALIUM [Concomitant]
  11. PERCOCET [Concomitant]

REACTIONS (15)
  - ARTERIAL BRUIT [None]
  - AUTOIMMUNE THYROIDITIS [None]
  - BRONCHITIS [None]
  - CARPAL TUNNEL SYNDROME [None]
  - CONSTIPATION [None]
  - FATIGUE [None]
  - FIBROMYALGIA [None]
  - IRRITABLE BOWEL SYNDROME [None]
  - LABYRINTHITIS [None]
  - MIGRAINE [None]
  - NAUSEA [None]
  - SINUSITIS [None]
  - SOMNOLENCE [None]
  - WEIGHT INCREASED [None]
  - WHEEZING [None]
